FAERS Safety Report 5509613-7 (Version None)
Quarter: 2007Q4

REPORT INFORMATION
  Report Type: 
  Country: None (occurrence: None)
  Receive Date: 20071107
  Receipt Date: 20071107
  Transmission Date: 20080405
  Serious: Yes (Hospitalization, Other)
  Sender: FDA-Public Use
  Company Number: None

PATIENT
  Age: 63 Year
  Sex: Female
  Weight: 74.8435 kg

DRUGS (1)
  1. PLAQUENIL [Suspect]
     Indication: OSTEOARTHRITIS
     Dosage: 200MG 2X
     Dates: start: 20070430, end: 20070615

REACTIONS (10)
  - AMNESIA [None]
  - DIARRHOEA [None]
  - DRUG HYPERSENSITIVITY [None]
  - DYSGEUSIA [None]
  - HALLUCINATION [None]
  - HYPERSENSITIVITY [None]
  - HYPOSMIA [None]
  - MEMORY IMPAIRMENT [None]
  - RASH PRURITIC [None]
  - URTICARIA [None]
